FAERS Safety Report 13943476 (Version 1)
Quarter: 2017Q3

REPORT INFORMATION
  Report Type: Spontaneous
  Country: AU (occurrence: AU)
  Receive Date: 20170907
  Receipt Date: 20170907
  Transmission Date: 20171128
  Serious: Yes (Death)
  Sender: FDA-Public Use
  Company Number: AU-MALLINCKRODT-T201703672

PATIENT
  Sex: Male
  Weight: 3 kg

DRUGS (1)
  1. INOMAX [Suspect]
     Active Substance: NITRIC OXIDE
     Indication: BRONCHOPULMONARY DYSPLASIA
     Dosage: UNK
     Route: 065

REACTIONS (1)
  - Bronchopulmonary dysplasia [Fatal]
